FAERS Safety Report 26208167 (Version 1)
Quarter: 2025Q4

REPORT INFORMATION
  Report Type: Spontaneous
  Country: AU (occurrence: AU)
  Receive Date: 20251229
  Receipt Date: 20251229
  Transmission Date: 20260118
  Serious: Yes (Other)
  Sender: MYLAN
  Company Number: AU-MYLANLABS-2025M1110114

PATIENT
  Age: 82 Year
  Sex: Male

DRUGS (3)
  1. LINAGLIPTIN [Interacting]
     Active Substance: LINAGLIPTIN
     Indication: Diabetes mellitus
     Dosage: UNK
  2. DOXYCYCLINE [Suspect]
     Active Substance: DOXYCYCLINE
     Indication: Pemphigoid
     Dosage: UNK
  3. NICOTINAMIDE [Suspect]
     Active Substance: NIACINAMIDE
     Indication: Pemphigoid
     Dosage: UNK

REACTIONS (3)
  - Pemphigoid [Recovering/Resolving]
  - Drug ineffective [Unknown]
  - Product prescribing issue [Unknown]
